FAERS Safety Report 11349340 (Version 1)
Quarter: 2015Q3

REPORT INFORMATION
  Report Type: Spontaneous
  Country: US (occurrence: None)
  Receive Date: 20150630
  Receipt Date: 20150630
  Transmission Date: 20151125
  Serious: Yes (Other)
  Sender: FDA-Public Use
  Company Number: 2014COV00011

PATIENT
  Age: 61 Year
  Sex: Female
  Weight: 49 kg

DRUGS (19)
  1. CARDIZEM [Concomitant]
     Active Substance: DILTIAZEM HYDROCHLORIDE
  2. DIFLUCAN [Concomitant]
     Active Substance: FLUCONAZOLE
  3. CARDIZEM CD (DILTIAZEM HYDROCHLORIDE) [Concomitant]
  4. ESTRACE (ESTRADIOL) [Concomitant]
  5. PREVACID [Concomitant]
     Active Substance: LANSOPRAZOLE
  6. CHLORAL HYDRATE (CHLORAL HYDRATE) [Concomitant]
     Active Substance: CHLORAL HYDRATE
  7. CODEINE [Concomitant]
     Active Substance: CODEINE
  8. ZOFRAN (ONDANSETRON HYDROCHLORIDE) [Concomitant]
  9. HUMIRA [Suspect]
     Active Substance: ADALIMUMAB
     Indication: RHEUMATOID ARTHRITIS
     Dosage: 2X/MONTH, UNKNOWN
     Dates: start: 200206
  10. CYTOMEL (LIOTHYRONINE SODIUM) [Concomitant]
  11. PLAQUENIL [Suspect]
     Active Substance: HYDROXYCHLOROQUINE SULFATE
     Indication: PRODUCT USED FOR UNKNOWN INDICATION
  12. SYNTHROID [Concomitant]
     Active Substance: LEVOTHYROXINE SODIUM
  13. RELAFEN (NABUMETONE) [Concomitant]
  14. FAMOTIDINE. [Concomitant]
     Active Substance: FAMOTIDINE
  15. LAMOTRIGINE. [Concomitant]
     Active Substance: LAMOTRIGINE
  16. PROPANOLOL (PROPRANOLOL HYDROCHLORIDE) [Concomitant]
  17. PHENOBARBITOL [Concomitant]
  18. LIPITOR [Concomitant]
     Active Substance: ATORVASTATIN CALCIUM
  19. XYREM (OXYBATE SODIUM) [Concomitant]

REACTIONS (4)
  - Toxicity to various agents [None]
  - Maculopathy [None]
  - Retinopathy [None]
  - Retinal scar [None]

NARRATIVE: CASE EVENT DATE: 2009
